FAERS Safety Report 9616981 (Version 1)
Quarter: 2013Q4

REPORT INFORMATION
  Report Type: Spontaneous
  Country: BR (occurrence: BR)
  Receive Date: 20131011
  Receipt Date: 20131011
  Transmission Date: 20140711
  Serious: Yes (Death, Hospitalization, Other)
  Sender: FDA-Public Use
  Company Number: BR-ACTELION-A-CH2013-89755

PATIENT
  Age: 3 Year
  Sex: Female

DRUGS (1)
  1. ZAVESCA [Suspect]
     Indication: NIEMANN-PICK DISEASE
     Dosage: 100 MG, UNK
     Route: 048
     Dates: start: 20130916, end: 20131006

REACTIONS (13)
  - Right ventricular failure [Fatal]
  - Respiratory failure [Unknown]
  - Lung infiltration [Unknown]
  - Aspiration bronchial [Unknown]
  - Loss of consciousness [Unknown]
  - Hemiplegia [Unknown]
  - Convulsion [Unknown]
  - Vomiting [Unknown]
  - Diarrhoea [Unknown]
  - Dehydration [Unknown]
  - Hypoglycaemia [Unknown]
  - Niemann-Pick disease [Unknown]
  - Condition aggravated [Unknown]
